FAERS Safety Report 5621026-6 (Version None)
Quarter: 2008Q1

REPORT INFORMATION
  Report Type: 
  Country: None (occurrence: None)
  Receive Date: 20080208
  Receipt Date: 20080130
  Transmission Date: 20080703
  Serious: Yes (Other)
  Sender: FDA-Public Use
  Company Number: US-PFIZER INC-2008010145

PATIENT
  Sex: Female
  Weight: 54.545 kg

DRUGS (1)
  1. DETROL LA [Suspect]
     Indication: MICTURITION URGENCY
     Dates: start: 20080121, end: 20080101

REACTIONS (9)
  - CONTUSION [None]
  - DRUG INEFFECTIVE [None]
  - EXCORIATION [None]
  - FALL [None]
  - FEELING ABNORMAL [None]
  - INSOMNIA [None]
  - LACERATION [None]
  - SWELLING FACE [None]
  - WOUND [None]
